FAERS Safety Report 18851743 (Version 1)
Quarter: 2021Q1

REPORT INFORMATION
  Report Type: Spontaneous
  Country: GB (occurrence: GB)
  Receive Date: 20210205
  Receipt Date: 20210205
  Transmission Date: 20210420
  Serious: Yes (Hospitalization)
  Sender: FDA-Public Use
  Company Number: GB-TEVA-2021-GB-1874432

PATIENT
  Sex: Female

DRUGS (7)
  1. QUETIAPINE. [Concomitant]
     Active Substance: QUETIAPINE
     Dosage: 600 MILLIGRAM DAILY;
  2. QUETIAPINE. [Concomitant]
     Active Substance: QUETIAPINE
     Dosage: 4 DOSAGE FORMS DAILY;
  3. SERETIDE [Concomitant]
     Active Substance: FLUTICASONE PROPIONATE\SALMETEROL XINAFOATE
     Dosage: 250 EVOHALER (GLAXOSMITHKLINE UK LTD) TWO PUFFS TO BE INHALED TWICE A DAY
  4. CHLORPROMAZINE. [Concomitant]
     Active Substance: CHLORPROMAZINE
     Dosage: 100 MILLIGRAM DAILY; AT NIGHT
  5. CHLORPROMAZINE. [Concomitant]
     Active Substance: CHLORPROMAZINE
     Dosage: 1.5 DOSAGE FORMS DAILY;   EACH MORNING
  6. DEXAMETHASONE. [Suspect]
     Active Substance: DEXAMETHASONE
     Route: 065
  7. MIRTAZAPINE. [Concomitant]
     Active Substance: MIRTAZAPINE
     Dosage: 30MG ON

REACTIONS (2)
  - Delusion [Unknown]
  - Confusional state [Unknown]
